FAERS Safety Report 4705199-5 (Version None)
Quarter: 2005Q2

REPORT INFORMATION
  Report Type: 
  Country: None (occurrence: None)
  Receive Date: 20050628
  Receipt Date: 20050616
  Transmission Date: 20051028
  Serious: No
  Sender: FDA-Public Use
  Company Number: 11628

PATIENT
  Age: 39 Year
  Sex: Female

DRUGS (9)
  1. METHOTREXATE [Suspect]
     Indication: RHEUMATOID ARTHRITIS
     Dosage: 25 MG,SC
     Route: 058
  2. HYDROXYCHLOROQUINE PHOSPHATE [Suspect]
     Indication: RHEUMATOID ARTHRITIS
     Dosage: 200 MG, PO
     Route: 048
  3. ETANERCEPT [Suspect]
     Indication: PSORIATIC ARTHROPATHY
     Dosage: 25 MG 2/WK,SC
     Route: 058
     Dates: start: 20041210
  4. DIHYDROCODEINE BITARTRATE INJ [Suspect]
     Dosage: PO
     Route: 048
  5. CITALOPRAM [Suspect]
  6. DICLOFENAC SODIUM [Suspect]
     Dosage: 75 MG BID
  7. FOLIC ACID [Suspect]
  8. CLOPIDOGREL BISULFATE [Suspect]
  9. ORAL CONTRACEPTIVE [Suspect]

REACTIONS (1)
  - GALACTORRHOEA [None]
